FAERS Safety Report 21354930 (Version 1)
Quarter: 2022Q3

REPORT INFORMATION
  Report Type: Spontaneous
  Country: JP (occurrence: JP)
  Receive Date: 20220920
  Receipt Date: 20220920
  Transmission Date: 20221027
  Serious: Yes (Other)
  Sender: FDA-Public Use
  Company Number: JP-ELI_LILLY_AND_COMPANY-JP202209005897

PATIENT
  Age: 74 Year
  Sex: Female
  Weight: 46 kg

DRUGS (2)
  1. GEMZAR [Suspect]
     Active Substance: GEMCITABINE HYDROCHLORIDE
     Indication: Bile duct cancer
     Dosage: 1112 MG, UNKNOWN
     Route: 041
     Dates: start: 20211001
  2. CISPLATIN [Suspect]
     Active Substance: CISPLATIN
     Indication: Bile duct cancer
     Dosage: 28.7 MG, UNKNOWN
     Route: 041
     Dates: start: 20211001

REACTIONS (1)
  - Eczema [Recovered/Resolved]

NARRATIVE: CASE EVENT DATE: 20220520
